FAERS Safety Report 25397210 (Version 3)
Quarter: 2025Q4

REPORT INFORMATION
  Report Type: Spontaneous
  Country: US (occurrence: US)
  Receive Date: 20250604
  Receipt Date: 20251202
  Transmission Date: 20260118
  Serious: No
  Sender: SPRINGWORKS THERAPEUTIC
  Company Number: US-SPRINGWORKS THERAPEUTICS-SW-002582

PATIENT
  Sex: Female

DRUGS (2)
  1. GOMEKLI [Suspect]
     Active Substance: MIRDAMETINIB
     Indication: Neurofibromatosis
     Dosage: 1 DOSAGE FORM, QD FOR 3 WEEKS AND ONE WEEK OFF
     Dates: start: 202503
  2. GOMEKLI [Suspect]
     Active Substance: MIRDAMETINIB
     Indication: Neurofibroma

REACTIONS (8)
  - Liver disorder [Unknown]
  - Dehydration [Unknown]
  - Peripheral coldness [Unknown]
  - Acne [Unknown]
  - Hyperhidrosis [Unknown]
  - Nausea [Unknown]
  - Rash [Unknown]
  - Therapeutic product effect delayed [Unknown]
